FAERS Safety Report 8156514-4 (Version None)
Quarter: 2012Q1

REPORT INFORMATION
  Report Type: 
  Country: None (occurrence: None)
  Receive Date: 20120216
  Receipt Date: 20120203
  Transmission Date: 20120608
  Serious: Yes (Hospitalization)
  Sender: FDA-Public Use
  Company Number: KAD201201-000023

PATIENT
  Sex: Male
  Weight: 133.6 kg

DRUGS (14)
  1. CITALOPRAM HYDROBROMIDE [Concomitant]
  2. GABAPENTIN [Concomitant]
  3. ASPIRIN [Concomitant]
  4. RANITIDINE [Concomitant]
  5. NYQUIL [Concomitant]
  6. PEGASYS [Suspect]
     Indication: HEPATITIS C
     Dosage: 180 MCG/0.5 ML SUBCUTANEOUS ONCE WEEKLY
     Route: 058
     Dates: start: 20111129, end: 20120112
  7. FAMOTIDINE [Concomitant]
  8. GEODON [Concomitant]
  9. RIBAVIRIN [Suspect]
     Indication: HEPATITIS C
     Dosage: 400 MG TWO TIMES A DAY
     Dates: start: 20111129, end: 20120112
  10. ALBUTEROL [Concomitant]
  11. FLUTICASONE INHALER [Concomitant]
  12. HYDRALAZINE HCL [Concomitant]
  13. METOPROLOL [Concomitant]
  14. AZITHROMYCIN [Concomitant]

REACTIONS (4)
  - TREATMENT NONCOMPLIANCE [None]
  - CONDITION AGGRAVATED [None]
  - PNEUMONIA [None]
  - CHRONIC OBSTRUCTIVE PULMONARY DISEASE [None]
